FAERS Safety Report 9858694 (Version 3)
Quarter: 2014Q1

REPORT INFORMATION
  Report Type: Spontaneous
  Country: US (occurrence: None)
  Receive Date: 20140129
  Receipt Date: 20140321
  Transmission Date: 20141002
  Serious: Yes (Death)
  Sender: FDA-Public Use
  Company Number: PI-10096

PATIENT
  Age: 64 Year
  Sex: Female
  Weight: 102 kg

DRUGS (2)
  1. CHLORAPREP [Suspect]
     Indication: PREOPERATIVE CARE
     Route: 061
     Dates: start: 20131206
  2. CHLORAPREP (2%CHG/70% IPA) WITH FD+C YELLOW # 6 [Suspect]
     Indication: PREOPERATIVE CARE
     Route: 061
     Dates: start: 20131206

REACTIONS (3)
  - Thermal burn [None]
  - Procedural complication [None]
  - Accident [None]
